FAERS Safety Report 25478576 (Version 1)
Quarter: 2025Q2

REPORT INFORMATION
  Report Type: Spontaneous
  Country: CA (occurrence: CA)
  Receive Date: 20250625
  Receipt Date: 20250625
  Transmission Date: 20250716
  Serious: Yes (Other)
  Sender: PFIZER
  Company Number: CA-TAKEDA-2025TUS029703

PATIENT

DRUGS (6)
  1. PANTOPRAZOLE [Suspect]
     Active Substance: PANTOPRAZOLE
     Dates: start: 2021
  2. DEXILANT [Suspect]
     Active Substance: DEXLANSOPRAZOLE
     Dates: start: 2019
  3. DEXILANT [Suspect]
     Active Substance: DEXLANSOPRAZOLE
     Dates: start: 2020
  4. PROBIOTICS NOS [Suspect]
     Active Substance: PROBIOTICS NOS
  5. PROGESTERONE [Suspect]
     Active Substance: PROGESTERONE
  6. TITANIUM DIOXIDE [Suspect]
     Active Substance: TITANIUM DIOXIDE

REACTIONS (9)
  - Abdominal pain upper [Unknown]
  - Hypersensitivity [Unknown]
  - Madarosis [Unknown]
  - Abdominal distension [Unknown]
  - Sensitive skin [Unknown]
  - Vaginal disorder [Unknown]
  - Decreased appetite [Unknown]
  - Headache [Unknown]
  - Nausea [Unknown]
